FAERS Safety Report 5113841-2 (Version None)
Quarter: 2006Q3

REPORT INFORMATION
  Report Type: 
  Country: None (occurrence: None)
  Receive Date: 20060925
  Receipt Date: 20060914
  Transmission Date: 20061208
  Serious: Yes (Hospitalization)
  Sender: FDA-Public Use
  Company Number: CZ-ROCHE-462899

PATIENT
  Age: 57 Year
  Sex: Male

DRUGS (2)
  1. ZENAPAX [Suspect]
     Route: 042
     Dates: start: 20060715
  2. FK506 [Suspect]
     Route: 048
     Dates: start: 20060715

REACTIONS (1)
  - HEPATIC ENZYME INCREASED [None]
